FAERS Safety Report 12629809 (Version 1)
Quarter: 2016Q3

REPORT INFORMATION
  Report Type: Spontaneous
  Country: JP (occurrence: JP)
  Receive Date: 20160808
  Receipt Date: 20160808
  Transmission Date: 20161109
  Serious: Yes (Disabling, Other)
  Sender: FDA-Public Use
  Company Number: JP-PFIZER INC-2016332590

PATIENT
  Age: 35 Year
  Sex: Female

DRUGS (7)
  1. LOBU [Suspect]
     Active Substance: LOBUCAVIR
     Indication: NECK PAIN
     Dosage: 60 MG, 3X/DAY
     Route: 048
     Dates: start: 20160604, end: 201607
  2. LYRICA [Suspect]
     Active Substance: PREGABALIN
     Indication: MUSCULOSKELETAL PAIN
     Dosage: 50 MG, 1X/DAY
     Route: 048
     Dates: start: 20160611, end: 201607
  3. REBAMIPIDE [Suspect]
     Active Substance: REBAMIPIDE
     Indication: NECK PAIN
     Dosage: 100 MG, 3X/DAY
     Route: 048
     Dates: start: 20160604, end: 201607
  4. REBAMIPIDE [Suspect]
     Active Substance: REBAMIPIDE
     Indication: MUSCULOSKELETAL PAIN
  5. LANSOPRAZOLE. [Concomitant]
     Active Substance: LANSOPRAZOLE
     Indication: ABDOMINAL DISCOMFORT
     Dosage: 15 MG, 1X/DAY
     Route: 048
  6. LYRICA [Suspect]
     Active Substance: PREGABALIN
     Indication: NECK PAIN
     Dosage: 25 MG, 1X/DAY
     Route: 048
     Dates: start: 20160604, end: 20160610
  7. LOBU [Suspect]
     Active Substance: LOBUCAVIR
     Indication: MUSCULOSKELETAL PAIN

REACTIONS (2)
  - Polymenorrhoea [Not Recovered/Not Resolved]
  - Pruritus [Unknown]

NARRATIVE: CASE EVENT DATE: 20160705
